FAERS Safety Report 5825076-6 (Version None)
Quarter: 2008Q3

REPORT INFORMATION
  Report Type: 
  Country: None (occurrence: None)
  Receive Date: 20080729
  Receipt Date: 20070913
  Transmission Date: 20090109
  Serious: No
  Sender: FDA-Public Use
  Company Number: US-BAUSCH-2007BL003372

PATIENT
  Age: 55 Year
  Sex: Male

DRUGS (3)
  1. DEXAMETHASONE SODIUM PHOSPHATE OPHTHALMIC SOLUTION,0.1% [Suspect]
     Indication: HYPOACUSIS
     Route: 001
     Dates: start: 20070913, end: 20070914
  2. DEXAMETHASONE SODIUM PHOSPHATE OPHTHALMIC SOLUTION,0.1% [Suspect]
     Route: 001
     Dates: start: 20070915, end: 20070915
  3. DEPAKOTE [Concomitant]
     Indication: CONVULSION
     Route: 048
     Dates: start: 19820101

REACTIONS (3)
  - NAUSEA [None]
  - THROAT IRRITATION [None]
  - VOMITING [None]
